FAERS Safety Report 9518422 (Version 1)
Quarter: 2013Q1

REPORT INFORMATION
  Report Type: Spontaneous
  Country: US (occurrence: None)
  Receive Date: 20130305
  Receipt Date: 20130305
  Transmission Date: 20140127
  Serious: Yes (Other)
  Sender: FDA-Public Use
  Company Number: 163-21880-11121727

PATIENT
  Age: 72 Year
  Sex: Female
  Weight: 55.34 kg

DRUGS (7)
  1. REVLIMID (LENALIDOMIDE) (15 MILLIGRAM, CAPSULES) [Suspect]
     Indication: PLASMA CELL MYELOMA
     Dosage: 15 MG, 21 IN 21 D, PO
     Route: 048
     Dates: start: 20100520
  2. LEVOTHYROXINE (LEOVOTHYROXINE) (UNKNOWN) [Concomitant]
  3. OMEPRAZOLE (OMEPRAZOLE) (UNKNOWN) [Concomitant]
  4. MULTIVITAMINS (MULTIVITAMINS) (UNKNOWN) [Concomitant]
  5. DEXAMETHASONE (DEXAMETHASONE) (UNKNOWN) [Concomitant]
  6. CRANBERRY (BLACKMORES CRANBERRY) (TABLETS) [Concomitant]
  7. ASPIRIN (ACETYLSALICYLIC ACID) (UNKNOWN) (ACETYLSALICYLIC ACID) [Concomitant]

REACTIONS (3)
  - Diarrhoea [None]
  - Fatigue [None]
  - Back pain [None]
